FAERS Safety Report 9454723 (Version 1)
Quarter: 2020Q3

REPORT INFORMATION
  Report Type: Spontaneous
  Country: FR (occurrence: FR)
  Receive Date: 20130812
  Receipt Date: 20130812
  Transmission Date: 20201105
  Serious: Yes (Hospitalization)
  Sender: FDA-Public Use
  Company Number: FR-PFIZER INC-2013228468

PATIENT
  Age: 45 Year
  Sex: Female

DRUGS (7)
  1. EUPANTOL [Concomitant]
     Active Substance: PANTOPRAZOLE SODIUM
     Dosage: 40 MG, 1X/DAY
     Route: 048
     Dates: start: 20130527
  2. AVLOCARDYL [Concomitant]
     Active Substance: PROPRANOLOL HYDROCHLORIDE
     Dosage: 40 MG, 2X/DAY
     Route: 048
  3. ALDACTONE [Suspect]
     Active Substance: SPIRONOLACTONE
     Indication: HYPERTENSION
     Dosage: 75 MG, 1X/DAY
     Route: 048
     Dates: start: 20130527
  4. ACUPAN [Concomitant]
     Active Substance: NEFOPAM HYDROCHLORIDE
     Indication: PAIN
     Dosage: 0.5 DF, 2X/DAY
     Route: 048
     Dates: start: 20130527, end: 20130603
  5. EPHEDRINE. [Suspect]
     Active Substance: EPHEDRINE
     Indication: ANAESTHESIA
     Dosage: 9 MG, UNK
     Route: 042
     Dates: start: 20130603, end: 20130603
  6. PROPOFOL. [Suspect]
     Active Substance: PROPOFOL
     Dosage: 320 MG
     Route: 042
     Dates: start: 20130603, end: 20130603
  7. FORLAX [Concomitant]
     Active Substance: POLYETHYLENE GLYCOL 4000
     Indication: CONSTIPATION
     Dosage: 4 G, 2X/DAY
     Route: 048
     Dates: start: 20130527, end: 20130603

REACTIONS (1)
  - Pancreatitis acute [Recovered/Resolved]

NARRATIVE: CASE EVENT DATE: 20130604
